FAERS Safety Report 12290972 (Version 3)
Quarter: 2016Q2

REPORT INFORMATION
  Report Type: Spontaneous
  Country: HR (occurrence: HR)
  Receive Date: 20160421
  Receipt Date: 20160509
  Transmission Date: 20160815
  Serious: Yes (Death, Hospitalization)
  Sender: FDA-Public Use
  Company Number: HR-JNJFOC-20160419160

PATIENT
  Age: 79 Year
  Sex: Male
  Weight: 74 kg

DRUGS (4)
  1. PHENOBARBITAL. [Suspect]
     Active Substance: PHENOBARBITAL
     Indication: SUBDURAL HAEMATOMA
     Route: 048
     Dates: start: 20160226
  2. RANITIDINE. [Suspect]
     Active Substance: RANITIDINE
     Indication: PROPHYLAXIS
     Route: 048
     Dates: start: 20160227, end: 20160321
  3. XARELTO [Suspect]
     Active Substance: RIVAROXABAN
     Indication: CEREBROVASCULAR ACCIDENT PROPHYLAXIS
     Route: 048
     Dates: start: 20160227, end: 20160321
  4. XARELTO [Suspect]
     Active Substance: RIVAROXABAN
     Indication: ATRIAL FIBRILLATION
     Route: 048
     Dates: start: 20160227, end: 20160321

REACTIONS (10)
  - Cardiac valve vegetation [Unknown]
  - Enterococcal infection [Unknown]
  - Mitral valve incompetence [Unknown]
  - Endocarditis [Unknown]
  - Death [Fatal]
  - Subdural haematoma [Unknown]
  - Mitral valve prolapse [Unknown]
  - Mitral valve calcification [Unknown]
  - Subdural haematoma [Unknown]
  - Ventricular hypokinesia [Unknown]

NARRATIVE: CASE EVENT DATE: 20160226
